FAERS Safety Report 8415693-1 (Version None)
Quarter: 2012Q2

REPORT INFORMATION
  Report Type: 
  Country: None (occurrence: None)
  Receive Date: 20120323
  Receipt Date: 20110216
  Transmission Date: 20120825
  Serious: Yes (Other)
  Sender: FDA-Public Use
  Company Number: 163-21880-11022021

PATIENT
  Age: 80 Year
  Sex: Male

DRUGS (6)
  1. AMITRIPTYLINE HYDROCHLORIDE [Concomitant]
  2. REVLIMID [Suspect]
     Indication: MULTIPLE MYELOMA
     Dosage: 5 MG, FOR 28 DAYS, PO ; 5 MG, X 28 DAYS, PO
     Route: 048
     Dates: start: 20101204, end: 20110214
  3. REVLIMID [Suspect]
     Indication: MULTIPLE MYELOMA
     Dosage: 5 MG, FOR 28 DAYS, PO ; 5 MG, X 28 DAYS, PO
     Route: 048
     Dates: start: 20100412
  4. DILTIAZEM HYDROCHLORIDE [Concomitant]
  5. ACYCLOVIR [Concomitant]
  6. AVODART [Concomitant]

REACTIONS (1)
  - FATIGUE [None]
